FAERS Safety Report 5428304-4 (Version None)
Quarter: 2007Q3

REPORT INFORMATION
  Report Type: 
  Country: None (occurrence: None)
  Receive Date: 20070731
  Receipt Date: 20070409
  Transmission Date: 20080115
  Serious: No
  Sender: FDA-Public Use
  Company Number: US200704002082

PATIENT
  Age: 63 Year
  Sex: Female

DRUGS (4)
  1. BYETTA [Suspect]
     Indication: TYPE 2 DIABETES MELLITUS
     Dosage: 5 UG, 2/D, SUBCUTANEOUS ; 10 UG 2/D SUBCUTANEOUS
     Route: 058
     Dates: start: 20050901, end: 20050101
  2. BYETTA [Suspect]
     Indication: TYPE 2 DIABETES MELLITUS
     Dosage: 5 UG, 2/D, SUBCUTANEOUS ; 10 UG 2/D SUBCUTANEOUS
     Route: 058
     Dates: start: 20050101
  3. EXENATIDE 5MCG PEN, DISPOSABLE DEVICE (EXETANIDE PEN (5MCG)) PEN DISPO [Concomitant]
  4. GLIPIZIDE [Concomitant]

REACTIONS (3)
  - ASTHENIA [None]
  - BLOOD GLUCOSE DECREASED [None]
  - PRESYNCOPE [None]
